FAERS Safety Report 10610079 (Version 4)
Quarter: 2019Q2

REPORT INFORMATION
  Report Type: Spontaneous
  Country: US (occurrence: US)
  Receive Date: 20141126
  Receipt Date: 20190614
  Transmission Date: 20190711
  Serious: Yes (Other)
  Sender: FDA-Public Use
  Company Number: US-PFIZER INC-2014325075

PATIENT
  Sex: Male
  Weight: 122 kg

DRUGS (1)
  1. LYRICA [Suspect]
     Active Substance: PREGABALIN
     Indication: NERVE INJURY
     Dosage: 450 MG, 2X/DAY
     Route: 048

REACTIONS (7)
  - Pain [Unknown]
  - Product use in unapproved indication [Unknown]
  - Spinal fracture [Unknown]
  - Nerve injury [Unknown]
  - Impaired work ability [Unknown]
  - Off label use [Unknown]
  - Prescribed overdose [Unknown]
